FAERS Safety Report 19372328 (Version 1)
Quarter: 2021Q2

REPORT INFORMATION
  Report Type: Spontaneous
  Country: FR (occurrence: FR)
  Receive Date: 20210604
  Receipt Date: 20210604
  Transmission Date: 20210717
  Serious: Yes (Hospitalization, Other)
  Sender: FDA-Public Use
  Company Number: FR-BION-009775

PATIENT
  Age: 58 Year
  Sex: Male

DRUGS (2)
  1. FOLIC ACID. [Concomitant]
     Active Substance: FOLIC ACID
     Indication: SUPPLEMENTATION THERAPY
     Dates: start: 2019
  2. TETRABENAZINE. [Suspect]
     Active Substance: TETRABENAZINE
     Indication: CHOREA
     Dosage: TOTAL DOSE WAS 100 MG PER DAY ON 23?NOV?2019
     Dates: start: 20191024, end: 2019

REACTIONS (5)
  - Thrombocytopenia [Recovered/Resolved]
  - Sepsis [Recovered/Resolved]
  - Agranulocytosis [Recovered/Resolved]
  - Nausea [Unknown]
  - Fatigue [Unknown]

NARRATIVE: CASE EVENT DATE: 2019
